FAERS Safety Report 6294121-9 (Version None)
Quarter: 2009Q3

REPORT INFORMATION
  Report Type: 
  Country: None (occurrence: None)
  Receive Date: 20090803
  Receipt Date: 20081202
  Transmission Date: 20100115
  Serious: No
  Sender: FDA-Public Use
  Company Number: A0758943A

PATIENT
  Age: 40 Year
  Sex: Male

DRUGS (1)
  1. NICORETTE (MINT) [Suspect]
     Dates: start: 20081123, end: 20081128

REACTIONS (1)
  - CARDIAC MURMUR [None]
